FAERS Safety Report 18123471 (Version 5)
Quarter: 2022Q3

REPORT INFORMATION
  Report Type: Report from Study
  Country: CA (occurrence: CA)
  Receive Date: 20200807
  Receipt Date: 20220711
  Transmission Date: 20221027
  Serious: Yes (Hospitalization)
  Sender: FDA-Public Use
  Company Number: CA-GLAXOSMITHKLINE-CA2020AMR149355

PATIENT

DRUGS (1)
  1. MEPOLIZUMAB [Suspect]
     Active Substance: MEPOLIZUMAB
     Indication: Asthma
     Dosage: 100 MG, Z, MONTHLY
     Route: 042
     Dates: start: 20200603

REACTIONS (7)
  - Localised infection [Not Recovered/Not Resolved]
  - Fall [Unknown]
  - Wheezing [Unknown]
  - Foreign body in skin or subcutaneous tissue [Unknown]
  - Infection [Unknown]
  - Circumstance or information capable of leading to medication error [Unknown]
  - Pathological fracture [Unknown]
